FAERS Safety Report 9862795 (Version 1)
Quarter: 2014Q1

REPORT INFORMATION
  Report Type: Spontaneous
  Country: US (occurrence: None)
  Receive Date: 20140131
  Receipt Date: 20140131
  Transmission Date: 20141002
  Serious: Yes (Other)
  Sender: FDA-Public Use
  Company Number: None

PATIENT
  Age: 58 Year
  Sex: Female

DRUGS (14)
  1. AFINITOR [Suspect]
  2. SYNTHROID [Concomitant]
  3. BONIVA [Concomitant]
  4. EXEMESTANE [Concomitant]
  5. SYNTHROID [Concomitant]
  6. CALTRATE [Concomitant]
  7. FEMARA [Concomitant]
  8. AFINITOR [Concomitant]
  9. LETROZOLE [Concomitant]
  10. TRAZODONE [Concomitant]
  11. ASPIRIN [Concomitant]
  12. SIMVASTATIN [Concomitant]
  13. ZOLOFT [Concomitant]
  14. ASPIRIN [Concomitant]

REACTIONS (1)
  - Stomatitis [None]
